FAERS Safety Report 8612474-0 (Version None)
Quarter: 2012Q3

REPORT INFORMATION
  Report Type: 
  Country: None (occurrence: None)
  Receive Date: 20120822
  Receipt Date: 20120817
  Transmission Date: 20120928
  Serious: Yes (Hospitalization)
  Sender: FDA-Public Use
  Company Number: US-AMGEN-USACT2012052437

PATIENT
  Age: 66 Year
  Sex: Female

DRUGS (13)
  1. DARBEPOETIN ALFA [Suspect]
     Indication: CARDIAC FAILURE
     Dosage: UNK UNK, Q2WK
     Route: 058
     Dates: start: 20070124
  2. HUMALOG [Concomitant]
  3. BACTRIM DS [Concomitant]
  4. ALLEGRA [Concomitant]
  5. ALLOPURINOL [Concomitant]
  6. NORVASC [Concomitant]
  7. LANTUS [Concomitant]
  8. COREG [Concomitant]
  9. LASIX [Concomitant]
  10. BYETTA [Concomitant]
  11. LIPITOR [Concomitant]
  12. METFORMIN [Concomitant]
  13. LISINOPRIL [Concomitant]

REACTIONS (1)
  - TRANSIENT ISCHAEMIC ATTACK [None]
